FAERS Safety Report 25990562 (Version 1)
Quarter: 2025Q4

REPORT INFORMATION
  Report Type: Spontaneous
  Country: US (occurrence: US)
  Receive Date: 20251103
  Receipt Date: 20251103
  Transmission Date: 20260117
  Serious: No
  Sender: ABBVIE
  Company Number: US-ABBVIE-6528218

PATIENT
  Sex: Female

DRUGS (4)
  1. BOTOX COSMETIC [Suspect]
     Active Substance: ONABOTULINUMTOXINA
     Indication: Face lift
     Dosage: TIME INTERVAL: AS NECESSARY: 33 UNIT
     Route: 065
     Dates: start: 20251029, end: 20251029
  2. BOTOX COSMETIC [Suspect]
     Active Substance: ONABOTULINUMTOXINA
     Indication: Face lift
     Dosage: TIME INTERVAL: AS NECESSARY: 33 UNIT
     Route: 065
     Dates: start: 20251029, end: 20251029
  3. BOTOX COSMETIC [Suspect]
     Active Substance: ONABOTULINUMTOXINA
     Indication: Face lift
     Dosage: TIME INTERVAL: AS NECESSARY: 33 UNIT
     Route: 065
     Dates: start: 20251029, end: 20251029
  4. BOTOX COSMETIC [Suspect]
     Active Substance: ONABOTULINUMTOXINA
     Indication: Face lift
     Dosage: TIME INTERVAL: AS NECESSARY: 33 UNIT
     Route: 065
     Dates: start: 20251029, end: 20251029

REACTIONS (1)
  - Vision blurred [Unknown]

NARRATIVE: CASE EVENT DATE: 20251030
